FAERS Safety Report 10045012 (Version 1)
Quarter: 2014Q1

REPORT INFORMATION
  Report Type: Spontaneous
  Country: US (occurrence: None)
  Receive Date: 20140306
  Receipt Date: 20140306
  Transmission Date: 20141002
  Serious: Yes (Other)
  Sender: FDA-Public Use
  Company Number: 163-21880-13053224

PATIENT
  Age: 80 Year
  Sex: Male
  Weight: 61.24 kg

DRUGS (15)
  1. REVLIMID (LENALIDOMIDE) (2.5 MILLIGRAM, CAPSULES) [Suspect]
     Indication: DIFFUSE LARGE B-CELL LYMPHOMA
     Route: 048
     Dates: start: 20121231
  2. PREDNISONE (PREDNISONE) [Concomitant]
  3. VALTREX (VALACICLOVIR HYDROCHLORIDE) [Concomitant]
  4. BACTRIM DS (BACTRIM) [Concomitant]
  5. NEUPOGEN (FILGRASTIM) [Concomitant]
  6. PRBC (BLOOD AND RELATED PRODUCTS) [Concomitant]
  7. CIPROFLOXACIN (CIPROFLOXACIN) [Concomitant]
  8. AUGMENTIN [Concomitant]
  9. NEULASTA (PEGFILGRASTIM) [Concomitant]
  10. FINASTERIDE [Concomitant]
  11. HYDROCHLOROTHIAZIDE [Concomitant]
  12. MEGACE (MEGESTROL ACETATE) [Concomitant]
  13. MUGARD (CARBOMER) [Concomitant]
  14. SIMVASTATIN [Concomitant]
  15. ZOFRAN ODT (ONDANSETRON HYDROCHLORIDE) [Concomitant]

REACTIONS (7)
  - Neutrophil count decreased [None]
  - Rash [None]
  - Neuropathy peripheral [None]
  - White blood cell count decreased [None]
  - Upper respiratory tract infection [None]
  - Fatigue [None]
  - Dysgeusia [None]
